FAERS Safety Report 7563047-2 (Version None)
Quarter: 2011Q2

REPORT INFORMATION
  Report Type: 
  Country: None (occurrence: None)
  Receive Date: 20110615
  Receipt Date: 20110606
  Transmission Date: 20111010
  Serious: Yes (Hospitalization)
  Sender: FDA-Public Use
  Company Number: DKLU1071152

PATIENT
  Age: 6 Year
  Sex: Male

DRUGS (3)
  1. DIAZEPAM [Concomitant]
  2. SIROLIMUS (STROLIMUS) [Concomitant]
  3. SABRIL [Suspect]
     Indication: TUBEROUS SCLEROSIS
     Dosage: 1000 MG MILLIGRAM(S), 2 IN 1 D, ORAL
     Route: 048

REACTIONS (1)
  - EAR INFECTION [None]
